FAERS Safety Report 4778567-3 (Version None)
Quarter: 2005Q3

REPORT INFORMATION
  Report Type: 
  Country: None (occurrence: None)
  Receive Date: 20050922
  Receipt Date: 20050912
  Transmission Date: 20060218
  Serious: Yes (Death, Other)
  Sender: FDA-Public Use
  Company Number: 2005127196

PATIENT
  Sex: Female

DRUGS (2)
  1. FRAGMIN [Suspect]
     Indication: ILL-DEFINED DISORDER
     Dates: start: 20030818, end: 20041003
  2. CITODON (CODEINE PHOSPHATE, PARACETAMOL) [Suspect]
     Indication: MIGRAINE
     Dates: start: 20030101

REACTIONS (8)
  - DRUG EXPOSURE DURING PREGNANCY [None]
  - INDUCED LABOUR [None]
  - PLACENTAL DISORDER [None]
  - PLACENTAL NECROSIS [None]
  - PREMATURE LABOUR [None]
  - STILLBIRTH [None]
  - THROMBOSIS [None]
  - UMBILICAL CORD VASCULAR DISORDER [None]
